FAERS Safety Report 8478210-6 (Version None)
Quarter: 2012Q2

REPORT INFORMATION
  Report Type: 
  Country: None (occurrence: None)
  Receive Date: 20120629
  Receipt Date: 20120627
  Transmission Date: 20120825
  Serious: Yes (Hospitalization)
  Sender: FDA-Public Use
  Company Number: PHHY2012IN045492

PATIENT
  Sex: Male

DRUGS (2)
  1. DASATINIB [Concomitant]
  2. IMATINIB MESYLATE [Suspect]
     Indication: CHRONIC MYELOID LEUKAEMIA
     Dosage: 400 MG, UNK
     Route: 048

REACTIONS (6)
  - TESTICULAR SWELLING [None]
  - BACK PAIN [None]
  - HEADACHE [None]
  - THERAPEUTIC RESPONSE DECREASED [None]
  - ABDOMINAL PAIN UPPER [None]
  - DRUG RESISTANCE [None]
